FAERS Safety Report 9323663 (Version 1)
Quarter: 2013Q2

REPORT INFORMATION
  Report Type: Spontaneous
  Country: AU (occurrence: AU)
  Receive Date: 20130603
  Receipt Date: 20130603
  Transmission Date: 20140414
  Serious: Yes (Other)
  Sender: FDA-Public Use
  Company Number: PHHY2013AU053740

PATIENT
  Sex: Male

DRUGS (1)
  1. EXJADE [Suspect]
     Indication: IRON OVERLOAD
     Dosage: UNK UKN, UNK

REACTIONS (5)
  - Chest pain [Unknown]
  - Hepatic pain [Unknown]
  - Jaundice [Unknown]
  - Liver function test abnormal [Unknown]
  - Malaise [Unknown]
